FAERS Safety Report 8134651-8 (Version None)
Quarter: 2012Q1

REPORT INFORMATION
  Report Type: 
  Country: None (occurrence: None)
  Receive Date: 20120214
  Receipt Date: 20120203
  Transmission Date: 20120608
  Serious: Yes (Hospitalization, Other)
  Sender: FDA-Public Use
  Company Number: CA-JNJFOC-20120203244

PATIENT
  Sex: Male
  Weight: 73 kg

DRUGS (4)
  1. FLAGYL [Concomitant]
     Route: 065
  2. METHOTREXATE [Concomitant]
     Route: 065
  3. CIPROFLOXACIN [Concomitant]
     Route: 065
  4. REMICADE [Suspect]
     Indication: CROHN'S DISEASE
     Route: 042
     Dates: start: 20110701

REACTIONS (1)
  - FISTULA [None]
